FAERS Safety Report 16033386 (Version 2)
Quarter: 2019Q2

REPORT INFORMATION
  Report Type: Report from Study
  Country: None (occurrence: US)
  Receive Date: 20190305
  Receipt Date: 20190405
  Transmission Date: 20190711
  Serious: Yes (Hospitalization, Other)
  Sender: FDA-Public Use
  Company Number: US-ABBVIE-19K-163-2688096-00

PATIENT
  Age: 53 Year
  Sex: Female
  Weight: 94.43 kg

DRUGS (7)
  1. METFORMIN [Concomitant]
     Active Substance: METFORMIN HYDROCHLORIDE
     Indication: DIABETES MELLITUS
  2. ASPIRIN. [Concomitant]
     Active Substance: ASPIRIN
     Indication: CARDIAC DISORDER
  3. DIAZEPAM. [Concomitant]
     Active Substance: DIAZEPAM
     Indication: FACIAL SPASM
  4. OXCARBAZEPINE. [Concomitant]
     Active Substance: OXCARBAZEPINE
     Indication: SEIZURE
  5. LOSARTAN. [Concomitant]
     Active Substance: LOSARTAN
     Indication: HYPERTENSION
  6. HUMIRA [Suspect]
     Active Substance: ADALIMUMAB
     Indication: RHEUMATOID ARTHRITIS
     Route: 058
     Dates: start: 2010, end: 20190130
  7. AMLODIPINE [Concomitant]
     Active Substance: AMLODIPINE BESYLATE
     Indication: HYPERTENSION

REACTIONS (5)
  - Hypoaesthesia [Recovered/Resolved]
  - Influenza [Recovering/Resolving]
  - Rash [Recovered/Resolved]
  - Post procedural complication [Unknown]
  - Hernia [Recovered/Resolved]

NARRATIVE: CASE EVENT DATE: 201902
